FAERS Safety Report 9011278 (Version 1)
Quarter: 2013Q1

REPORT INFORMATION
  Report Type: Spontaneous
  Country: US (occurrence: US)
  Receive Date: 20130109
  Receipt Date: 20130109
  Transmission Date: 20140127
  Serious: Yes (Disabling, Other)
  Sender: FDA-Public Use
  Company Number: US-009507513-1301USA002129

PATIENT
  Age: 14 Year
  Sex: Male

DRUGS (4)
  1. SINGULAIR [Suspect]
     Route: 048
  2. AERIUS [Suspect]
     Route: 048
  3. ANAFRANIL [Suspect]
     Route: 048
  4. SYMBICORT [Suspect]
     Dosage: INHALATION
     Route: 055

REACTIONS (1)
  - Systemic lupus erythematosus [Unknown]
